FAERS Safety Report 10648486 (Version 1)
Quarter: 2014Q4

REPORT INFORMATION
  Report Type: Report from Study
  Country: US (occurrence: None)
  Receive Date: 20141204
  Receipt Date: 20141204
  Transmission Date: 20150529
  Serious: Yes (Hospitalization)
  Sender: FDA-Public Use
  Company Number: PHHO2014US001070

PATIENT
  Age: 66 Year
  Sex: Male
  Weight: 88.2 kg

DRUGS (8)
  1. MILRINONE [Concomitant]
     Active Substance: MILRINONE
  2. SPIRONOLACTONE. [Suspect]
     Active Substance: SPIRONOLACTONE
     Indication: CARDIAC FAILURE CHRONIC
     Route: 048
     Dates: start: 20140108
  3. METOLAZONE. [Concomitant]
     Active Substance: METOLAZONE
  4. SPIRONOLACTONE. [Suspect]
     Active Substance: SPIRONOLACTONE
     Indication: CARDIAC FAILURE CONGESTIVE
     Route: 048
     Dates: start: 20140108
  5. RLX030 VS PLACEBO (CODE NOT BROKEN) INJECTION [Suspect]
     Active Substance: SERELAXIN
     Indication: CARDIAC FAILURE ACUTE
     Dosage: CODE NOT BROKEN
     Route: 042
     Dates: start: 20140106, end: 20140108
  6. ACETAZOLAMIDE. [Concomitant]
     Active Substance: ACETAZOLAMIDE
  7. FUROSEMIDE. [Suspect]
     Active Substance: FUROSEMIDE
     Indication: CARDIAC FAILURE CONGESTIVE
     Dosage: 20 MG/H
     Route: 042
     Dates: start: 20140110
  8. FUROSEMIDE. [Suspect]
     Active Substance: FUROSEMIDE
     Indication: CARDIAC FAILURE CHRONIC
     Dosage: 20 MG/H
     Route: 042
     Dates: start: 20140110

REACTIONS (1)
  - Renal failure [None]

NARRATIVE: CASE EVENT DATE: 20140117
